FAERS Safety Report 9357499 (Version 2)
Quarter: 2013Q3

REPORT INFORMATION
  Report Type: Report from Study
  Country: BR (occurrence: BR)
  Receive Date: 20130620
  Receipt Date: 20130705
  Transmission Date: 20140515
  Serious: Yes (Other)
  Sender: FDA-Public Use
  Company Number: PHHY2013BR028255

PATIENT
  Age: 45 Year
  Sex: Female

DRUGS (3)
  1. RITALIN LA [Suspect]
     Indication: ATTENTION DEFICIT/HYPERACTIVITY DISORDER
     Dosage: 20 MG, QD
     Route: 048
  2. RITALIN LA [Suspect]
     Dosage: 10 MG, QD
     Route: 048
  3. PAROXETINE [Concomitant]
     Indication: DEPRESSION
     Dosage: 1 DF, QD

REACTIONS (12)
  - Confusional state [Not Recovered/Not Resolved]
  - Impaired reasoning [Not Recovered/Not Resolved]
  - Amnesia [Not Recovered/Not Resolved]
  - Drug withdrawal syndrome [Not Recovered/Not Resolved]
  - Tremor [Not Recovered/Not Resolved]
  - Dizziness [Not Recovered/Not Resolved]
  - Anxiety [Not Recovered/Not Resolved]
  - Stress [Recovered/Resolved]
  - Aggression [Recovered/Resolved]
  - Nervousness [Recovered/Resolved]
  - Agitation [Recovered/Resolved]
  - Disturbance in attention [Not Recovered/Not Resolved]
